FAERS Safety Report 9633027 (Version 1)
Quarter: 2013Q4

REPORT INFORMATION
  Report Type: Report from Study
  Country: GB (occurrence: GB)
  Receive Date: 20131018
  Receipt Date: 20131018
  Transmission Date: 20140711
  Serious: Yes (Life-Threatening)
  Sender: FDA-Public Use
  Company Number: GB-ASTRAZENECA-2013SE76795

PATIENT
  Sex: 0

DRUGS (1)
  1. QUETIAPINE [Suspect]
     Route: 048

REACTIONS (2)
  - Overdose [Unknown]
  - Cardiac arrest [Unknown]
